FAERS Safety Report 23232976 (Version 1)
Quarter: 2023Q4

REPORT INFORMATION
  Report Type: Spontaneous
  Country: US (occurrence: US)
  Receive Date: 20231128
  Receipt Date: 20231128
  Transmission Date: 20240110
  Serious: Yes (Hospitalization)
  Sender: FDA-Public Use
  Company Number: US-JNJFOC-20231156364

PATIENT
  Sex: Female

DRUGS (3)
  1. UPTRAVI [Suspect]
     Active Substance: SELEXIPAG
     Indication: Product used for unknown indication
     Route: 048
  2. AMBRISENTAN [Suspect]
     Active Substance: AMBRISENTAN
     Indication: Pulmonary arterial hypertension
     Dosage: QD
     Route: 065
     Dates: start: 20201009
  3. ADCIRCA [Concomitant]
     Active Substance: TADALAFIL
     Indication: Pulmonary hypertension

REACTIONS (7)
  - Fluid retention [Unknown]
  - Renal disorder [Unknown]
  - Urticaria [Unknown]
  - Pain in jaw [Unknown]
  - Migraine [Unknown]
  - Nausea [Unknown]
  - Headache [Unknown]
